FAERS Safety Report 8848908 (Version 2)
Quarter: 2013Q2

REPORT INFORMATION
  Report Type: Report from Study
  Country: JP (occurrence: JP)
  Receive Date: 20121018
  Receipt Date: 20130403
  Transmission Date: 20140414
  Serious: Yes (Hospitalization, Other)
  Sender: FDA-Public Use
  Company Number: JP-VERTEX PHARMACEUTICAL INC.-2012-023055

PATIENT
  Age: 47 Year
  Sex: Male

DRUGS (8)
  1. VX-950 (TELAPREVIR) [Suspect]
     Indication: CHRONIC HEPATITIS C
     Dosage: 2250 MG, QD
     Route: 048
     Dates: start: 20120405, end: 20120624
  2. PEGINTRON [Suspect]
     Indication: CHRONIC HEPATITIS C
     Dosage: 1.3 ?G/KG, WEEKLY
     Route: 058
     Dates: start: 20120405, end: 20120707
  3. REBETOL [Suspect]
     Indication: CHRONIC HEPATITIS C
     Dosage: 1000 MG, QD
     Route: 048
     Dates: start: 20120405, end: 20120425
  4. REBETOL [Suspect]
     Dosage: 800 MG, QD
     Route: 048
     Dates: start: 20120426, end: 20120508
  5. REBETOL [Suspect]
     Dosage: 400 MG, QD
     Route: 048
     Dates: start: 20120509, end: 20120520
  6. REBETOL [Suspect]
     Dosage: 600 MG, QD
     Route: 048
     Dates: start: 20120521, end: 20120610
  7. REBETOL [Suspect]
     Dosage: 800 MG, QD
     Route: 048
     Dates: start: 20120611, end: 20120707
  8. MICARDIS [Concomitant]
     Dosage: 40 MG, QD
     Route: 048

REACTIONS (1)
  - Depression [Recovered/Resolved]
